FAERS Safety Report 12989221 (Version 2)
Quarter: 2017Q1

REPORT INFORMATION
  Report Type: Spontaneous
  Country: SE (occurrence: SE)
  Receive Date: 20161201
  Receipt Date: 20170216
  Transmission Date: 20170428
  Serious: Yes (Hospitalization)
  Sender: FDA-Public Use
  Company Number: SE-ASTRAZENECA-2016SF25646

PATIENT
  Age: 47 Year
  Sex: Male

DRUGS (8)
  1. NEXIUM HP [Suspect]
     Active Substance: AMOXICILLIN\CLARITHROMYCIN\ESOMEPRAZOLE
     Indication: HELICOBACTER INFECTION
     Route: 048
  2. NEXIUM HP [Suspect]
     Active Substance: AMOXICILLIN\CLARITHROMYCIN\ESOMEPRAZOLE
     Indication: HELICOBACTER INFECTION
     Dosage: 1 TABLET NEXIUM TWICE DAILY FOR ONE WEEK
     Route: 048
  3. AMOXICILLIN. [Suspect]
     Active Substance: AMOXICILLIN
     Dosage: NON AZ PRODUCT, 2 TABLETS AMIMOX TWICE DAILY FOR ONE WEEK
     Route: 065
  4. CLARITHROMYCIN. [Suspect]
     Active Substance: CLARITHROMYCIN
     Dosage: NON AZ PRODUCT
     Route: 065
  5. AMOXICILLIN. [Suspect]
     Active Substance: AMOXICILLIN
     Dosage: NON AZ PRODUCT
     Route: 065
  6. LERGIGAN MITE [Concomitant]
     Dosage: 1 TABLET WHEN NEEDED
     Dates: start: 201602
  7. MIRTAZAPIN [Concomitant]
     Active Substance: MIRTAZAPINE
  8. CLARITHROMYCIN. [Suspect]
     Active Substance: CLARITHROMYCIN
     Dosage: NON AZ PRODUCT, 1 TABLET KLACID TWICE DAILY FOR ONE WEEK
     Route: 065

REACTIONS (5)
  - Constipation [Unknown]
  - Abdominal pain upper [Not Recovered/Not Resolved]
  - Headache [Unknown]
  - Arthralgia [Unknown]
  - Diverticulitis [Unknown]

NARRATIVE: CASE EVENT DATE: 20161001
